FAERS Safety Report 6545036-X (Version None)
Quarter: 2010Q1

REPORT INFORMATION
  Report Type: 
  Country: None (occurrence: None)
  Receive Date: 20100121
  Receipt Date: 20100118
  Transmission Date: 20100710
  Serious: Yes (Death)
  Sender: FDA-Public Use
  Company Number: B0613463A

PATIENT
  Sex: Male

DRUGS (5)
  1. LAMICTAL [Suspect]
     Indication: EPILEPSY
     Dosage: 75MG TWICE PER DAY
     Route: 048
     Dates: start: 20090323, end: 20091207
  2. ALEVIATIN [Suspect]
     Indication: EPILEPSY
     Route: 048
  3. MYSTAN [Suspect]
     Indication: EPILEPSY
     Route: 048
  4. BIOFERMIN [Concomitant]
     Dosage: 3G PER DAY
     Route: 048
  5. LAC B [Concomitant]
     Dosage: 3G PER DAY
     Route: 048

REACTIONS (11)
  - ANAEMIA [None]
  - BLOOD BILIRUBIN INCREASED [None]
  - BLOOD CHOLINESTERASE DECREASED [None]
  - CARDIAC FAILURE [None]
  - HEPATIC FUNCTION ABNORMAL [None]
  - OEDEMA PERIPHERAL [None]
  - PLATELET COUNT DECREASED [None]
  - PNEUMONIA [None]
  - RENAL FAILURE [None]
  - RESPIRATORY ARREST [None]
  - URINE OUTPUT DECREASED [None]
